FAERS Safety Report 12788188 (Version 2)
Quarter: 2016Q4

REPORT INFORMATION
  Report Type: Report from Study
  Country: US (occurrence: US)
  Receive Date: 20160928
  Receipt Date: 20161010
  Transmission Date: 20170207
  Serious: Yes (Disabling)
  Sender: FDA-Public Use
  Company Number: US-GILEAD-2016-0206622

PATIENT
  Age: 80 Year
  Sex: Female
  Weight: 117.4 kg

DRUGS (26)
  1. FLUTICASONE [Concomitant]
     Active Substance: FLUTICASONE\FLUTICASONE PROPIONATE
  2. GABAPENTIN. [Concomitant]
     Active Substance: GABAPENTIN
  3. ADEMPAS [Concomitant]
     Active Substance: RIOCIGUAT
  4. OXYGEN. [Concomitant]
     Active Substance: OXYGEN
  5. PRAMIPEXOLE. [Concomitant]
     Active Substance: PRAMIPEXOLE
  6. VITAMIN D3 [Concomitant]
     Active Substance: CHOLECALCIFEROL
  7. ESCITALOPRAM [Concomitant]
     Active Substance: ESCITALOPRAM OXALATE
  8. FUROSEMIDE. [Concomitant]
     Active Substance: FUROSEMIDE
  9. LOSARTAN. [Concomitant]
     Active Substance: LOSARTAN
  10. WARFARIN [Concomitant]
     Active Substance: WARFARIN
  11. HYDROCODONE [Concomitant]
     Active Substance: HYDROCODONE
  12. LATANOPROST. [Concomitant]
     Active Substance: LATANOPROST
  13. TIZANIDINE. [Concomitant]
     Active Substance: TIZANIDINE
  14. MODAFINIL. [Concomitant]
     Active Substance: MODAFINIL
  15. KLOR-CON ER [Concomitant]
  16. SPIRONOLACTONE. [Concomitant]
     Active Substance: SPIRONOLACTONE
  17. AMBRISENTAN [Suspect]
     Active Substance: AMBRISENTAN
     Indication: PULMONARY ARTERIAL HYPERTENSION
     Dosage: 5 MG, QD
     Route: 065
  18. AMLODIPINE [Concomitant]
     Active Substance: AMLODIPINE BESYLATE
  19. CARBIDOPA. [Concomitant]
     Active Substance: CARBIDOPA
  20. DIGOXIN. [Concomitant]
     Active Substance: DIGOXIN
  21. FLOVENT HFA [Concomitant]
     Active Substance: FLUTICASONE PROPIONATE
  22. AMBRISENTAN [Suspect]
     Active Substance: AMBRISENTAN
     Indication: PULMONARY HYPERTENSION
  23. NITROSTAT [Concomitant]
     Active Substance: NITROGLYCERIN
  24. QVAR [Concomitant]
     Active Substance: BECLOMETHASONE DIPROPIONATE
  25. ENTACAPONE. [Concomitant]
     Active Substance: ENTACAPONE
  26. LOVASTATIN. [Concomitant]
     Active Substance: LOVASTATIN

REACTIONS (6)
  - Activities of daily living impaired [Not Recovered/Not Resolved]
  - Oedema peripheral [Not Recovered/Not Resolved]
  - Dyspnoea [Not Recovered/Not Resolved]
  - Pain in extremity [Unknown]
  - Neck pain [Unknown]
  - Musculoskeletal pain [Unknown]
